FAERS Safety Report 10183909 (Version 2)
Quarter: 2014Q2

REPORT INFORMATION
  Report Type: Spontaneous
  Country: GB (occurrence: GB)
  Receive Date: 20140520
  Receipt Date: 20140520
  Transmission Date: 20141212
  Serious: Yes (Other)
  Sender: FDA-Public Use
  Company Number: GB-VERTEX PHARMACEUTICALS INC-2014-001344

PATIENT
  Age: 12 Day
  Sex: Female

DRUGS (7)
  1. KALYDECO [Suspect]
     Indication: CYSTIC FIBROSIS
     Dosage: 150 MG, BID
     Dates: start: 20140304, end: 20140313
  2. KALYDECO [Suspect]
     Dosage: 150 MG, BID
     Dates: start: 20140317
  3. CREON [Concomitant]
     Dosage: 10000 UNK, UNK
  4. FLUCLOXACILLIN [Concomitant]
     Dosage: 500 MG, BID
  5. URSODEOXYCHOLIC ACID [Concomitant]
     Dosage: 200 MG, BID
  6. VITAMIN E [Concomitant]
     Dosage: 100 MG, QD
  7. DALIVIT [Concomitant]
     Dosage: 1.2 ML, QD

REACTIONS (1)
  - Rash generalised [Unknown]
